FAERS Safety Report 23773846 (Version 1)
Quarter: 2024Q2

REPORT INFORMATION
  Report Type: Spontaneous
  Country: FR (occurrence: None)
  Receive Date: 20240423
  Receipt Date: 20240423
  Transmission Date: 20240716
  Serious: Yes (Life-Threatening)
  Sender: FDA-Public Use
  Company Number: 2024A091952

PATIENT
  Age: 78 Year
  Sex: Female
  Weight: 78 kg

DRUGS (13)
  1. DAPAGLIFLOZIN [Suspect]
     Active Substance: DAPAGLIFLOZIN
     Indication: Type 2 diabetes mellitus
     Route: 048
     Dates: end: 20240312
  2. METFORMIN PAMOATE [Suspect]
     Active Substance: METFORMIN PAMOATE
     Indication: Type 2 diabetes mellitus
     Route: 048
     Dates: end: 20240312
  3. FUROSEMIDE [Concomitant]
     Active Substance: FUROSEMIDE
  4. LORMETAZEPAM [Concomitant]
     Active Substance: LORMETAZEPAM
  5. GAVISCON [Concomitant]
     Active Substance: ALUMINUM HYDROXIDE\MAGNESIUM CARBONATE
  6. PANTOPRAZOLE [Concomitant]
     Active Substance: PANTOPRAZOLE
  7. POLYETHYLENE GLYCOLS [Concomitant]
     Active Substance: POLYETHYLENE GLYCOLS
  8. SIMVASTATIN [Concomitant]
     Active Substance: SIMVASTATIN
  9. ELIQUIS [Concomitant]
     Active Substance: APIXABAN
  10. ACETAMINOPHEN [Concomitant]
     Active Substance: ACETAMINOPHEN
  11. LEVOTHYROXINE [Concomitant]
     Active Substance: LEVOTHYROXINE\LEVOTHYROXINE SODIUM
  12. PREGABALIN [Concomitant]
     Active Substance: PREGABALIN
  13. BISOPROLOL FUMARATE [Concomitant]
     Active Substance: BISOPROLOL FUMARATE

REACTIONS (2)
  - Pyelonephritis [Recovering/Resolving]
  - Lactic acidosis [Recovered/Resolved]

NARRATIVE: CASE EVENT DATE: 20240310
